FAERS Safety Report 5119030-X (Version None)
Quarter: 2006Q3

REPORT INFORMATION
  Report Type: 
  Country: None (occurrence: None)
  Receive Date: 20060927
  Receipt Date: 20060914
  Transmission Date: 20061208
  Serious: Yes (Hospitalization, Other)
  Sender: FDA-Public Use
  Company Number: US-2006-022916

PATIENT
  Age: 34 Year
  Sex: Female

DRUGS (5)
  1. BETASERON [Suspect]
     Indication: MULTIPLE SCLEROSIS
     Dosage: 8 MIU, EVERY 2D, SUBCUTANEOUS
     Route: 058
     Dates: start: 20050501, end: 20060701
  2. BETASERON [Suspect]
     Indication: MULTIPLE SCLEROSIS
     Dosage: 8 MIU, EVERY 2D, SUBCUTANEOUS
     Route: 058
     Dates: start: 20060801
  3. EFFEXOR [Concomitant]
  4. DEMEROL TABLET [Concomitant]
  5. CLONIPAN (CLONAZEPAM) [Concomitant]

REACTIONS (11)
  - DEHYDRATION [None]
  - DEPRESSION [None]
  - DRUG DOSE OMISSION [None]
  - FATIGUE [None]
  - HALLUCINATION [None]
  - HYPERSOMNIA [None]
  - INCORRECT DRUG ADMINISTRATION RATE [None]
  - INFUSION SITE PAIN [None]
  - MIGRAINE [None]
  - MULTIPLE SCLEROSIS [None]
  - PAIN IN EXTREMITY [None]
